FAERS Safety Report 11902438 (Version 3)
Quarter: 2016Q1

REPORT INFORMATION
  Report Type: Spontaneous
  Country: PL (occurrence: PL)
  Receive Date: 20160108
  Receipt Date: 20160217
  Transmission Date: 20160526
  Serious: Yes (Life-Threatening, Hospitalization)
  Sender: FDA-Public Use
  Company Number: PL-B.I. PHARMACEUTICALS,INC./RIDGEFIELD-2016-BI-00432PN

PATIENT
  Age: 38 Year
  Sex: Female
  Weight: 42 kg

DRUGS (3)
  1. GILOTRIF [Suspect]
     Active Substance: AFATINIB
     Indication: ADENOCARCINOMA
     Dosage: 40 MG
     Route: 048
     Dates: start: 20150910
  2. DEXAMETHASONE. [Concomitant]
     Active Substance: DEXAMETHASONE
     Indication: METASTASES TO CENTRAL NERVOUS SYSTEM
     Dosage: 4 MG
     Route: 048
     Dates: start: 20150804, end: 20151114
  3. GILOTRIF [Suspect]
     Active Substance: AFATINIB
     Indication: EGFR GENE MUTATION

REACTIONS (11)
  - Sepsis [Recovered/Resolved with Sequelae]
  - White blood cell count decreased [Unknown]
  - Skin ulcer [Not Recovered/Not Resolved]
  - Clostridium difficile infection [Recovered/Resolved with Sequelae]
  - Laboratory test abnormal [Unknown]
  - Arthritis bacterial [Recovered/Resolved with Sequelae]
  - Diarrhoea [Recovered/Resolved with Sequelae]
  - Decubitus ulcer [Not Recovered/Not Resolved]
  - Liver injury [Unknown]
  - Pleural effusion [Unknown]
  - Hypokalaemia [Recovered/Resolved with Sequelae]

NARRATIVE: CASE EVENT DATE: 20151104
